FAERS Safety Report 23761524 (Version 1)
Quarter: 2024Q2

REPORT INFORMATION
  Report Type: Spontaneous
  Country: US (occurrence: None)
  Receive Date: 20240418
  Receipt Date: 20240418
  Transmission Date: 20240716
  Serious: Yes (Other)
  Sender: FDA-Public Use
  Company Number: None

PATIENT
  Age: 35 Year
  Sex: Female
  Weight: 63 kg

DRUGS (6)
  1. AIMOVIG [Suspect]
     Active Substance: ERENUMAB-AOOE
     Indication: Migraine prophylaxis
     Dosage: 1 INJECTION ONCE EVERY 28 DAYS SUBCUTANEOUS
     Route: 058
     Dates: start: 20240408, end: 20240408
  2. MIRENA [Concomitant]
     Active Substance: LEVONORGESTREL
  3. RIZATRIPTAN [Concomitant]
     Active Substance: RIZATRIPTAN
  4. TRAZODONE [Concomitant]
     Active Substance: TRAZODONE HYDROCHLORIDE
  5. IBUPROFEN [Concomitant]
     Active Substance: IBUPROFEN
  6. Prenatal Vitamin [Concomitant]

REACTIONS (6)
  - Constipation [None]
  - Abdominal distension [None]
  - Decreased appetite [None]
  - Nausea [None]
  - Abdominal discomfort [None]
  - Diarrhoea [None]

NARRATIVE: CASE EVENT DATE: 20240416
